FAERS Safety Report 24550890 (Version 4)
Quarter: 2025Q3

REPORT INFORMATION
  Report Type: Report from Study
  Country: US (occurrence: US)
  Receive Date: 20241025
  Receipt Date: 20250802
  Transmission Date: 20251021
  Serious: Yes (Other)
  Sender: ALEXION PHARMACEUTICALS
  Company Number: US-AstraZeneca-CH-00646895A

PATIENT
  Sex: Female

DRUGS (2)
  1. STRENSIQ [Suspect]
     Active Substance: ASFOTASE ALFA
     Indication: Hypophosphatasia
     Route: 065
  2. WEGOVY [Suspect]
     Active Substance: SEMAGLUTIDE
     Route: 065

REACTIONS (5)
  - Congenital cystic kidney disease [Not Recovered/Not Resolved]
  - Thymic cyst [Unknown]
  - Fatigue [Unknown]
  - Urinary incontinence [Unknown]
  - Illness [Unknown]
